FAERS Safety Report 17728943 (Version 1)
Quarter: 2020Q2

REPORT INFORMATION
  Report Type: Spontaneous
  Country: PT (occurrence: PT)
  Receive Date: 20200430
  Receipt Date: 20200430
  Transmission Date: 20200714
  Serious: Yes (Hospitalization)
  Sender: FDA-Public Use
  Company Number: PT-MYLANLABS-2019M1133101

PATIENT
  Age: 60 Year
  Sex: Female

DRUGS (1)
  1. OLMESARTAN MEDOXOMIL. [Suspect]
     Active Substance: OLMESARTAN MEDOXOMIL
     Indication: HYPERTENSION
     Dosage: 40 MILLIGRAM
     Route: 065
     Dates: start: 2013

REACTIONS (4)
  - Malabsorption [Recovered/Resolved]
  - Sprue-like enteropathy [Recovered/Resolved]
  - Fall [Recovered/Resolved]
  - Humerus fracture [Unknown]

NARRATIVE: CASE EVENT DATE: 2015
